FAERS Safety Report 12366940 (Version 2)
Quarter: 2016Q3

REPORT INFORMATION
  Report Type: Spontaneous
  Country: SE (occurrence: SE)
  Receive Date: 20160513
  Receipt Date: 20160909
  Transmission Date: 20161109
  Serious: Yes (Other)
  Sender: FDA-Public Use
  Company Number: SE-PFIZER INC-2016253136

PATIENT
  Age: 59 Year
  Sex: Female

DRUGS (3)
  1. METOPROLOL TARTRATE. [Suspect]
     Active Substance: METOPROLOL TARTRATE
     Dosage: UNK
     Dates: start: 201602
  2. ATORVASTATIN CALCIUM. [Suspect]
     Active Substance: ATORVASTATIN CALCIUM
     Dosage: 40 MG, UNK
     Dates: start: 201602, end: 201607
  3. TROMBYL [Suspect]
     Active Substance: ASPIRIN
     Dosage: UNK
     Dates: start: 201602

REACTIONS (4)
  - Faeces discoloured [Recovered/Resolved]
  - Haematochezia [Recovered/Resolved]
  - Weight decreased [Not Recovered/Not Resolved]
  - Liver function test decreased [Unknown]
